FAERS Safety Report 6333277-6 (Version None)
Quarter: 2009Q3

REPORT INFORMATION
  Report Type: 
  Country: None (occurrence: None)
  Receive Date: 20090828
  Receipt Date: 20090824
  Transmission Date: 20100115
  Serious: No
  Sender: FDA-Public Use
  Company Number: US-B.I. PHARMACEUTICALS,INC./RIDGEFIELD-2009-BP-09940BP

PATIENT
  Sex: Male

DRUGS (2)
  1. FLOMAX [Suspect]
     Indication: BENIGN PROSTATIC HYPERPLASIA
     Dosage: 0.4 MG
     Route: 048
     Dates: start: 20090401, end: 20090501
  2. THYROID TAB [Concomitant]
     Indication: HYPOTHYROIDISM

REACTIONS (3)
  - BLOOD PRESSURE SYSTOLIC ABNORMAL [None]
  - DIZZINESS [None]
  - HEADACHE [None]
